FAERS Safety Report 7125783-1 (Version None)
Quarter: 2010Q4

REPORT INFORMATION
  Report Type: 
  Country: None (occurrence: None)
  Receive Date: 20101129
  Receipt Date: 20101117
  Transmission Date: 20110411
  Serious: Yes (Hospitalization)
  Sender: FDA-Public Use
  Company Number: B0685881A

PATIENT
  Sex: Female

DRUGS (2)
  1. AUGMENTIN [Suspect]
     Indication: PHARYNGITIS
     Route: 048
     Dates: start: 20101009, end: 20101009
  2. OKI [Concomitant]
     Route: 048
     Dates: start: 20101008, end: 20101008

REACTIONS (3)
  - HYPOTENSION [None]
  - URTICARIA [None]
  - VOMITING [None]
